FAERS Safety Report 5149590-4 (Version None)
Quarter: 2006Q4

REPORT INFORMATION
  Report Type: 
  Country: None (occurrence: None)
  Receive Date: 20061113
  Receipt Date: 20060518
  Transmission Date: 20070319
  Serious: No
  Sender: FDA-Public Use
  Company Number: US-GLAXOSMITHKLINE-A0606649A

PATIENT
  Age: 70 Year
  Sex: Female

DRUGS (1)
  1. COREG [Suspect]
     Dosage: 3.125MG TWICE PER DAY
     Route: 048
     Dates: start: 20010101

REACTIONS (3)
  - ALOPECIA [None]
  - ANOREXIA [None]
  - MALNUTRITION [None]
